FAERS Safety Report 12162171 (Version 1)
Quarter: 2016Q1

REPORT INFORMATION
  Report Type: Spontaneous
  Country: AR (occurrence: AR)
  Receive Date: 20160309
  Receipt Date: 20160309
  Transmission Date: 20160526
  Serious: Yes (Other)
  Sender: FDA-Public Use
  Company Number: AR-AMGEN-ARGSP2016027833

PATIENT
  Age: 66 Year
  Sex: Female

DRUGS (1)
  1. ENBREL [Suspect]
     Active Substance: ETANERCEPT
     Indication: RHEUMATOID ARTHRITIS
     Dosage: 50 MG, WEEKLY
     Route: 065
     Dates: start: 20110303

REACTIONS (9)
  - Malaise [Recovering/Resolving]
  - Dizziness [Recovering/Resolving]
  - Thyroid disorder [Unknown]
  - Cerebrovascular accident [Recovered/Resolved]
  - Balance disorder [Recovering/Resolving]
  - Blood pressure increased [Recovered/Resolved]
  - Hypoaesthesia [Recovered/Resolved]
  - Blood pressure decreased [Recovering/Resolving]
  - Speech disorder [Recovered/Resolved]

NARRATIVE: CASE EVENT DATE: 201601
